FAERS Safety Report 8877466 (Version 1)
Quarter: 2012Q4

REPORT INFORMATION
  Report Type: 
  Country: US (occurrence: US)
  Receive Date: 20121023
  Receipt Date: 20121023
  Transmission Date: 20130627
  Serious: No
  Sender: FDA-Public Use
  Company Number: US-009507513-1210USA006183

PATIENT
  Sex: Female

DRUGS (1)
  1. SYLATRON [Suspect]
     Indication: MALIGNANT MELANOMA
     Dosage: 296 Microgram, qw
     Route: 058

REACTIONS (5)
  - Cognitive disorder [Unknown]
  - Feeling abnormal [Unknown]
  - Confusional state [Unknown]
  - Altered state of consciousness [Unknown]
  - Paraesthesia [Unknown]
